FAERS Safety Report 4828639-X (Version None)
Quarter: 2005Q4

REPORT INFORMATION
  Report Type: 
  Country: None (occurrence: None)
  Receive Date: 20051014
  Receipt Date: 20050705
  Transmission Date: 20060501
  Serious: No
  Sender: FDA-Public Use
  Company Number: 2005SP000867

PATIENT
  Age: 51 Year
  Sex: Female
  Weight: 117.9352 kg

DRUGS (16)
  1. LUNESTA [Suspect]
     Indication: INSOMNIA
     Dosage: 2 MG; HS; ORAL; 4 MG; HS; ORAL; 5 MG; HS; ORAL
     Route: 048
     Dates: start: 20050501, end: 20050501
  2. LUNESTA [Suspect]
     Indication: INSOMNIA
     Dosage: 2 MG; HS; ORAL; 4 MG; HS; ORAL; 5 MG; HS; ORAL
     Route: 048
     Dates: start: 20050502, end: 20050501
  3. LUNESTA [Suspect]
     Indication: INSOMNIA
     Dosage: 2 MG; HS; ORAL; 4 MG; HS; ORAL; 5 MG; HS; ORAL
     Route: 048
     Dates: start: 20050518
  4. CLONAZEPAM [Concomitant]
  5. TIZANIDINE HCL [Concomitant]
  6. ZONEGRAN [Concomitant]
  7. CYMBALTA [Concomitant]
  8. ADDERALL XR 10 [Concomitant]
  9. THYROID TAB [Concomitant]
  10. AMARYL [Concomitant]
  11. ABILIFY [Concomitant]
  12. CENESTIN [Concomitant]
  13. NEXIUM [Concomitant]
  14. LAMICTAL [Concomitant]
  15. SURFAK [Concomitant]
  16. IBUPROFEN [Concomitant]

REACTIONS (3)
  - BLOOD GLUCOSE INCREASED [None]
  - FATIGUE [None]
  - INSOMNIA [None]
